FAERS Safety Report 11478197 (Version 1)
Quarter: 2015Q3

REPORT INFORMATION
  Report Type: Spontaneous
  Country: US (occurrence: US)
  Receive Date: 20150909
  Receipt Date: 20150909
  Transmission Date: 20151125
  Serious: No
  Sender: FDA-Public Use
  Company Number: US-JAZZ-2015-US-009992

PATIENT
  Age: 43 Year
  Sex: Female
  Weight: 104.31 kg

DRUGS (12)
  1. MULTIVITAMIN [Concomitant]
     Active Substance: VITAMINS
     Indication: SUPPLEMENTATION THERAPY
     Dosage: UNK
  2. VITAMIN B12 [Concomitant]
     Active Substance: CYANOCOBALAMIN
     Indication: HYPOVITAMINOSIS
     Dosage: UNK
     Dates: start: 20140603
  3. VITAMIN C [Concomitant]
     Active Substance: ASCORBIC ACID
     Indication: HYPOVITAMINOSIS
     Dosage: UNK
     Dates: start: 20150603
  4. VITAMIN D3 [Concomitant]
     Active Substance: CHOLECALCIFEROL
     Indication: PRODUCT USED FOR UNKNOWN INDICATION
     Dosage: UNK
     Dates: start: 20150603
  5. IRON [Concomitant]
     Active Substance: IRON
     Indication: IRON DEFICIENCY
     Dosage: 65 MG, QD
     Dates: start: 20150603
  6. RITALIN [Concomitant]
     Active Substance: METHYLPHENIDATE HYDROCHLORIDE
     Indication: NARCOLEPSY
     Dosage: 10 MG, BID
     Dates: start: 20150603
  7. ZONISAMIDE. [Concomitant]
     Active Substance: ZONISAMIDE
     Indication: INTRACRANIAL PRESSURE INCREASED
     Dosage: 200 MG, QD
     Dates: start: 20140101
  8. PROBIOTIC [Concomitant]
     Active Substance: PROBIOTICS NOS
     Indication: ABDOMINAL DISCOMFORT
     Dosage: UNK
     Dates: start: 20150615
  9. XYREM [Suspect]
     Active Substance: SODIUM OXYBATE
     Indication: NARCOLEPSY
     Dosage: 2.25 G, BID
     Route: 048
     Dates: start: 20150627, end: 2015
  10. XYREM [Suspect]
     Active Substance: SODIUM OXYBATE
     Indication: CATAPLEXY
  11. VITAMIN D 2000 [Concomitant]
     Indication: HYPOVITAMINOSIS
     Dosage: UNK
  12. SYMBICORT [Concomitant]
     Active Substance: BUDESONIDE\FORMOTEROL FUMARATE DIHYDRATE
     Indication: PRODUCT USED FOR UNKNOWN INDICATION
     Dosage: UNK
     Dates: start: 20150603

REACTIONS (8)
  - Tongue disorder [Unknown]
  - Inappropriate affect [Unknown]
  - Fatigue [Unknown]
  - Asthenia [Unknown]
  - Unevaluable event [Unknown]
  - Feeling abnormal [Unknown]
  - Apathy [Unknown]
  - Soliloquy [Unknown]

NARRATIVE: CASE EVENT DATE: 20150630
